FAERS Safety Report 14525335 (Version 3)
Quarter: 2018Q4

REPORT INFORMATION
  Report Type: Report from Study
  Country: GB (occurrence: GB)
  Receive Date: 20180213
  Receipt Date: 20181015
  Transmission Date: 20190204
  Serious: Yes (Hospitalization)
  Sender: FDA-Public Use
  Company Number: GB-JNJFOC-20180212668

PATIENT
  Age: 65 Year
  Sex: Female
  Weight: 107 kg

DRUGS (24)
  1. LACRI-LUBE [Concomitant]
     Dosage: APPLIED AT NIGHT
     Route: 047
  2. TRESIBA [Concomitant]
     Active Substance: INSULIN DEGLUDEC
     Route: 058
  3. LAXIDO ORANGE [Concomitant]
     Route: 048
  4. DESLORATADINE. [Concomitant]
     Active Substance: DESLORATADINE
     Route: 065
  5. FULTIUM [Concomitant]
     Active Substance: CHOLECALCIFEROL
     Route: 065
  6. ATORVASTATIN [Concomitant]
     Active Substance: ATORVASTATIN
     Route: 065
  7. ATENOLOL. [Concomitant]
     Active Substance: ATENOLOL
     Route: 065
  8. GABAPENTIN. [Concomitant]
     Active Substance: GABAPENTIN
     Route: 065
  9. FUCIBET [Concomitant]
     Route: 065
  10. TRULICITY [Concomitant]
     Active Substance: DULAGLUTIDE
     Route: 058
  11. METFORMIN [Concomitant]
     Active Substance: METFORMIN HYDROCHLORIDE
     Route: 065
  12. FUROSEMIDE. [Concomitant]
     Active Substance: FUROSEMIDE
     Route: 065
  13. TILDIEM LA [Concomitant]
     Active Substance: DILTIAZEM HYDROCHLORIDE
     Route: 065
  14. HYDROXOCOBALAMIN [Concomitant]
     Active Substance: HYDROXOCOBALAMIN
     Route: 065
  15. ASPIRIN. [Concomitant]
     Active Substance: ASPIRIN
     Route: 065
  16. STELARA [Suspect]
     Active Substance: USTEKINUMAB
     Indication: PSORIASIS
     Route: 058
     Dates: start: 20170301
  17. HUMALOG [Concomitant]
     Active Substance: INSULIN LISPRO
     Dosage: TAKEN SHORTLY BEFORE MEALS OR WHEN NECESSARY SHORTLY AFTER MEALS
     Route: 058
  18. HYLO-FORTE [Concomitant]
     Active Substance: HYALURONATE SODIUM
     Route: 047
  19. INDAPAMIDE. [Concomitant]
     Active Substance: INDAPAMIDE
     Route: 065
  20. ZAPAIN [Concomitant]
     Active Substance: ACETAMINOPHEN\CODEINE PHOSPHATE
     Dosage: 01 OR 02 TO BE TAKEN FOUR TIMES A DAY WHEN REQUIRED.
     Route: 065
  21. CAPTOPRIL. [Concomitant]
     Active Substance: CAPTOPRIL
     Dosage: ONE TABLET TWICE A DAY
     Route: 065
  22. LANSOPRAZOLE. [Concomitant]
     Active Substance: LANSOPRAZOLE
     Route: 065
  23. PROCHLORPERAZINE. [Concomitant]
     Active Substance: PROCHLORPERAZINE
     Indication: DIZZINESS
     Dosage: ONE TO BE TAKEN 3 TIMES A DAY
     Route: 065
  24. FLUCONAZOLE. [Concomitant]
     Active Substance: FLUCONAZOLE
     Route: 065

REACTIONS (3)
  - Hallucination [Recovering/Resolving]
  - Lower respiratory tract infection [Recovered/Resolved]
  - Gastroenteritis [Recovered/Resolved]

NARRATIVE: CASE EVENT DATE: 20180120
